FAERS Safety Report 6123854-X (Version None)
Quarter: 2009Q1

REPORT INFORMATION
  Report Type: 
  Country: None (occurrence: None)
  Receive Date: 20090319
  Receipt Date: 20090311
  Transmission Date: 20090719
  Serious: Yes (Death, Other)
  Sender: FDA-Public Use
  Company Number: US-BRISTOL-MYERS SQUIBB COMPANY-14546055

PATIENT
  Age: 58 Year
  Sex: Female

DRUGS (1)
  1. PACLITAXEL [Suspect]
     Indication: OVARIAN EPITHELIAL CANCER
     Dosage: 70MG/M2=110MG ON DAY1,8,15

REACTIONS (3)
  - GASTROINTESTINAL NECROSIS [None]
  - GASTROINTESTINAL PERFORATION [None]
  - NEUTROPENIA [None]
